FAERS Safety Report 25382594 (Version 2)
Quarter: 2025Q4

REPORT INFORMATION
  Report Type: Spontaneous
  Country: TH (occurrence: TH)
  Receive Date: 20250601
  Receipt Date: 20251212
  Transmission Date: 20260117
  Serious: No
  Sender: ABBVIE
  Company Number: TH-ABBVIE-6295946

PATIENT

DRUGS (1)
  1. OZURDEX [Suspect]
     Active Substance: DEXAMETHASONE
     Indication: Product used for unknown indication
     Dosage: TIME INTERVAL: AS NECESSARY: DRUG DELIVERY SYSTEM PEN INJECTOR
     Route: 050

REACTIONS (1)
  - No adverse event [Unknown]
